FAERS Safety Report 10156751 (Version 2)
Quarter: 2014Q2

REPORT INFORMATION
  Report Type: Spontaneous
  Country: US (occurrence: US)
  Receive Date: 20140507
  Receipt Date: 20140507
  Transmission Date: 20141212
  Serious: Yes (Other)
  Sender: FDA-Public Use
  Company Number: US-ELI_LILLY_AND_COMPANY-US201403003512

PATIENT
  Sex: Female

DRUGS (4)
  1. HUMALOG LISPRO [Suspect]
     Indication: DIABETES MELLITUS
     Dosage: UNK UNK, PRN
     Route: 065
  2. HUMALOG LISPRO [Suspect]
     Dosage: UNK, UNKNOWN
     Route: 065
  3. HUMALOG 25% LISPRO, 75% NPL [Suspect]
     Indication: DIABETES MELLITUS
     Route: 065
  4. NOVOLOG [Concomitant]

REACTIONS (3)
  - Breast cancer [Unknown]
  - Blood glucose increased [Unknown]
  - Drug dispensing error [Unknown]
